FAERS Safety Report 10763224 (Version 1)
Quarter: 2015Q1

REPORT INFORMATION
  Report Type: Report from Study
  Country: BR (occurrence: BR)
  Receive Date: 20150204
  Receipt Date: 20150204
  Transmission Date: 20150721
  Serious: Yes (Hospitalization, Other)
  Sender: FDA-Public Use
  Company Number: PHHY2015BR013580

PATIENT
  Age: 78 Year
  Sex: Male
  Weight: 94 kg

DRUGS (3)
  1. EXELON PATCH [Suspect]
     Active Substance: RIVASTIGMINE
     Indication: DEMENTIA ALZHEIMER^S TYPE
     Dosage: 4.7 MG (AS REPORTED)
     Route: 062
     Dates: start: 201411
  2. DONEPEZIL [Suspect]
     Active Substance: DONEPEZIL
     Indication: DEMENTIA ALZHEIMER^S TYPE
     Dosage: 2 DF, QD
     Route: 065
     Dates: end: 201411
  3. MEMANTINE [Suspect]
     Active Substance: MEMANTINE
     Indication: DEMENTIA ALZHEIMER^S TYPE
     Dosage: 2 DF, QD
     Route: 065
     Dates: end: 201411

REACTIONS (3)
  - Pneumonia [Not Recovered/Not Resolved]
  - Drug ineffective [Unknown]
  - Aspiration bronchial [Not Recovered/Not Resolved]

NARRATIVE: CASE EVENT DATE: 201501
